FAERS Safety Report 8579709-4 (Version None)
Quarter: 2012Q3

REPORT INFORMATION
  Report Type: 
  Country: None (occurrence: None)
  Receive Date: 20120808
  Receipt Date: 20120730
  Transmission Date: 20120928
  Serious: Yes (Hospitalization, Disabling)
  Sender: FDA-Public Use
  Company Number: BR-ASTRAZENECA-2012SE54397

PATIENT
  Age: 78 Year
  Sex: Female
  Weight: 85 kg

DRUGS (1)
  1. ATACAND [Suspect]
     Indication: HYPERTENSION
     Route: 048
     Dates: end: 20060101

REACTIONS (4)
  - DRUG INEFFECTIVE [None]
  - FALL [None]
  - BLOOD PRESSURE INCREASED [None]
  - UPPER LIMB FRACTURE [None]
